FAERS Safety Report 12691033 (Version 2)
Quarter: 2016Q4

REPORT INFORMATION
  Report Type: Spontaneous
  Country: US (occurrence: US)
  Receive Date: 20160826
  Receipt Date: 20161209
  Transmission Date: 20170207
  Serious: Yes (Death, Hospitalization)
  Sender: FDA-Public Use
  Company Number: US-INCYTE CORPORATION-2016IN005286

PATIENT
  Age: 56 Year
  Sex: Female

DRUGS (29)
  1. JAKAFI [Suspect]
     Active Substance: RUXOLITINIB
     Indication: GRAFT VERSUS HOST DISEASE
     Dosage: 10 MG, BID
     Route: 048
     Dates: start: 20160713, end: 20160723
  2. BECLOMETHASONE                     /00212602/ [Concomitant]
     Active Substance: BECLOMETHASONE
     Indication: PRODUCT USED FOR UNKNOWN INDICATION
     Dosage: 2 MG, QID
     Route: 048
  3. ATIVAN [Concomitant]
     Active Substance: LORAZEPAM
     Indication: NAUSEA
     Dosage: 1-2 TABS, EVERY 6 HOURS PRN
     Route: 048
  4. BACTRIM DS [Concomitant]
     Active Substance: SULFAMETHOXAZOLE\TRIMETHOPRIM
     Indication: PROPHYLAXIS
     Dosage: 1 TAB BID ON MONDAY AND THRUSDAY
     Route: 048
     Dates: start: 20160530
  5. VFEND [Concomitant]
     Active Substance: VORICONAZOLE
     Indication: PRODUCT USED FOR UNKNOWN INDICATION
     Dosage: 300 MG, BID
     Route: 048
  6. JAKAFI [Suspect]
     Active Substance: RUXOLITINIB
     Dosage: 10 MG, BID STARTING ON DAY 4
     Route: 048
     Dates: start: 20160714
  7. REFRESH                            /00007002/ [Concomitant]
     Indication: PRODUCT USED FOR UNKNOWN INDICATION
     Dosage: 1 DROP TO BOTH EYES, 6 TIMES DAILY
     Route: 047
  8. GENGRAF [Concomitant]
     Active Substance: CYCLOSPORINE
     Indication: PRODUCT USED FOR UNKNOWN INDICATION
     Dosage: 50 MG, QD AM
     Route: 048
  9. JAKAFI [Suspect]
     Active Substance: RUXOLITINIB
     Dosage: 10 MG, BID
     Route: 048
     Dates: start: 20160724, end: 20160810
  10. ENTOCORT EC [Concomitant]
     Active Substance: BUDESONIDE
     Indication: PRODUCT USED FOR UNKNOWN INDICATION
     Dosage: 3 MG, BID
     Route: 048
  11. MAALOX ANTACID [Concomitant]
     Active Substance: ALUMINUM HYDROXIDE\DIMETHICONE\MAGNESIUM HYDROXIDE
     Indication: PRODUCT USED FOR UNKNOWN INDICATION
     Dosage: 200/200 MG/5 ML, 15 ML EVERY 4 HOURS PRN
     Route: 048
  12. AMBIEN [Concomitant]
     Active Substance: ZOLPIDEM TARTRATE
     Indication: INSOMNIA
  13. RESTASIS [Concomitant]
     Active Substance: CYCLOSPORINE
     Indication: PHOTOPHOBIA
     Dosage: 1 DROP TO BOTH EYES, PRN
     Route: 047
  14. NOVOLOG [Concomitant]
     Active Substance: INSULIN ASPART
     Indication: PRODUCT USED FOR UNKNOWN INDICATION
     Dosage: 100 UNIT/ML, SLIDING SCALE
  15. ZOFRAN [Concomitant]
     Active Substance: ONDANSETRON HYDROCHLORIDE
     Indication: NAUSEA
     Dosage: 1-2 TABS, EVERY 6 HOURS PRN
     Route: 048
  16. ZOVIRAX [Concomitant]
     Active Substance: ACYCLOVIR
     Indication: PROPHYLAXIS
     Dosage: 800 MG, BID
     Route: 048
  17. COZAAR [Concomitant]
     Active Substance: LOSARTAN POTASSIUM
     Indication: HYPERTENSION
     Dosage: 0.5 DF, QD
     Route: 048
  18. PETROLATUM. [Concomitant]
     Active Substance: PETROLATUM
     Indication: PRODUCT USED FOR UNKNOWN INDICATION
     Dosage: 0.25 INCHEST, BOTH EYES AT BEDTIME QD
     Route: 047
  19. K-DUR [Concomitant]
     Active Substance: POTASSIUM CHLORIDE
     Indication: PRODUCT USED FOR UNKNOWN INDICATION
     Dosage: 20 MEQ, QD
     Route: 048
  20. CATHFLO ACTIVASE [Concomitant]
     Active Substance: ALTEPLASE
     Indication: PRODUCT USED FOR UNKNOWN INDICATION
     Dosage: 2 MG/2ML, INTRACATHETER PRN
     Route: 042
  21. ROXICODONE [Concomitant]
     Active Substance: OXYCODONE HYDROCHLORIDE
     Indication: PAIN
     Dosage: 5 MG, EVERY 4 HOURS PRN
     Route: 048
  22. K-DUR [Concomitant]
     Active Substance: POTASSIUM CHLORIDE
     Dosage: 10 MEQ/50 ML, 50 ML PRN
     Route: 042
  23. GENGRAF [Concomitant]
     Active Substance: CYCLOSPORINE
     Dosage: 25 MG Q PM
     Route: 048
  24. DELTASONE [Concomitant]
     Active Substance: PREDNISONE
     Indication: PRODUCT USED FOR UNKNOWN INDICATION
     Dosage: 4.5 TABS, BID
     Route: 048
  25. URSODIOL. [Concomitant]
     Active Substance: URSODIOL
     Indication: PRODUCT USED FOR UNKNOWN INDICATION
     Dosage: 500 MG, BID
     Route: 048
  26. LASIX [Concomitant]
     Active Substance: FUROSEMIDE
     Indication: PRODUCT USED FOR UNKNOWN INDICATION
     Dosage: 40 MG, QD
     Route: 048
  27. ZOFRAN [Concomitant]
     Active Substance: ONDANSETRON HYDROCHLORIDE
     Dosage: 4 MG/2 ML SOLUTION, 4 ML EVERY 6 HRS PRN
     Route: 048
  28. PROTONIX [Concomitant]
     Active Substance: PANTOPRAZOLE SODIUM
     Indication: PRODUCT USED FOR UNKNOWN INDICATION
     Dosage: 40 MG, BID
     Route: 048
  29. AMBIEN [Concomitant]
     Active Substance: ZOLPIDEM TARTRATE
     Indication: SLEEP DISORDER
     Dosage: 5 MG, QD
     Route: 048

REACTIONS (36)
  - Liver function test increased [Unknown]
  - Hyperglycaemia [Unknown]
  - Ocular icterus [Unknown]
  - Cardiac arrest [Fatal]
  - Anaemia [Unknown]
  - Band neutrophil percentage increased [Unknown]
  - Vision blurred [Unknown]
  - Hepatic function abnormal [Unknown]
  - Encephalopathy [Unknown]
  - Thrombocytopenia [Unknown]
  - Dehydration [Unknown]
  - Shock [Unknown]
  - Graft versus host disease [Unknown]
  - Ammonia increased [Unknown]
  - Fatigue [Unknown]
  - Disseminated intravascular coagulation [Unknown]
  - Acute kidney injury [Unknown]
  - Decreased appetite [Unknown]
  - Bradycardia [Unknown]
  - Conjunctival oedema [Unknown]
  - Dysarthria [Unknown]
  - Jaundice [Unknown]
  - Blood bilirubin increased [Unknown]
  - Hypokalaemia [Unknown]
  - Lacrimation decreased [Unknown]
  - Off label use [Unknown]
  - Bacterial sepsis [Unknown]
  - Clostridium difficile colitis [Unknown]
  - Diarrhoea [Unknown]
  - International normalised ratio increased [Unknown]
  - Lactic acidosis [Unknown]
  - Asthenia [Unknown]
  - Photophobia [Unknown]
  - Photopsia [Unknown]
  - Mental status changes [Unknown]
  - Aphasia [Unknown]

NARRATIVE: CASE EVENT DATE: 20160713
